FAERS Safety Report 14322626 (Version 1)
Quarter: 2017Q4

REPORT INFORMATION
  Report Type: Spontaneous
  Country: FR (occurrence: FR)
  Receive Date: 20171225
  Receipt Date: 20171225
  Transmission Date: 20180321
  Serious: Yes (Other)
  Sender: FDA-Public Use
  Company Number: FR-ASTRAZENECA-2017SF29132

PATIENT
  Age: 70 Year
  Sex: Male
  Weight: 76 kg

DRUGS (4)
  1. INEXIUM [Suspect]
     Active Substance: ESOMEPRAZOLE
     Indication: HIATUS HERNIA
     Dosage: 1.0DF UNKNOWN
     Route: 048
     Dates: start: 201005, end: 20170402
  2. PRAVASTATINE SODIQUE [Concomitant]
     Active Substance: PRAVASTATIN SODIUM
     Indication: HYPERCHOLESTEROLAEMIA
     Route: 048
  3. PREGABALIN. [Concomitant]
     Active Substance: PREGABALIN
     Indication: PAIN IN EXTREMITY
     Dosage: 50.0MG UNKNOWN
     Route: 048
     Dates: start: 20160622
  4. ESCITALOPRAM [Interacting]
     Active Substance: ESCITALOPRAM OXALATE
     Indication: ABDOMINAL PAIN
     Dosage: 10.0MG UNKNOWN
     Route: 048

REACTIONS (6)
  - Myalgia [Recovered/Resolved]
  - Condition aggravated [Recovered/Resolved]
  - Testicular pain [Recovered/Resolved]
  - Formication [Recovered/Resolved]
  - Hyperkalaemia [Unknown]
  - Arthralgia [Recovered/Resolved]

NARRATIVE: CASE EVENT DATE: 2016
